FAERS Safety Report 11804828 (Version 3)
Quarter: 2018Q3

REPORT INFORMATION
  Report Type: Spontaneous
  Country: US (occurrence: US)
  Receive Date: 20151205
  Receipt Date: 20180719
  Transmission Date: 20181010
  Serious: No
  Sender: FDA-Public Use
  Company Number: US-ASTRAZENECA-2006BM07235

PATIENT
  Age: 64 Year
  Sex: Female
  Weight: 85.3 kg

DRUGS (11)
  1. BYDUREON [Suspect]
     Active Substance: EXENATIDE
     Route: 058
  2. HUMALOG [Concomitant]
     Active Substance: INSULIN LISPRO
     Dosage: TID BEFORE MEALS DEPENDING ON HOW MANY CARBS SHE EATS
     Route: 058
  3. BYDUREON BCISE [Suspect]
     Active Substance: EXENATIDE
     Indication: TYPE 2 DIABETES MELLITUS
     Dosage: DOSE UNKNOWN, WEEKLY
     Route: 058
     Dates: start: 20180609
  4. BYETTA [Suspect]
     Active Substance: EXENATIDE
     Indication: TYPE 2 DIABETES MELLITUS
     Route: 058
     Dates: start: 20060419
  5. GLUCOPHAGE [Concomitant]
     Active Substance: METFORMIN HYDROCHLORIDE
     Route: 065
  6. ACTOS [Concomitant]
     Active Substance: PIOGLITAZONE HYDROCHLORIDE
     Route: 065
     Dates: start: 20060419
  7. VYTORIN [Concomitant]
     Active Substance: EZETIMIBE\SIMVASTATIN
     Indication: BLOOD CHOLESTEROL ABNORMAL
     Route: 065
     Dates: start: 200603
  8. TOUJEO [Concomitant]
     Active Substance: INSULIN GLARGINE
     Indication: TYPE 2 DIABETES MELLITUS
     Route: 058
  9. ACTOS [Concomitant]
     Active Substance: PIOGLITAZONE HYDROCHLORIDE
     Route: 065
     Dates: end: 20060419
  10. GLUCOTROL [Concomitant]
     Active Substance: GLIPIZIDE
     Route: 065
     Dates: end: 20060419
  11. METFORMIN [Concomitant]
     Active Substance: METFORMIN HYDROCHLORIDE
     Indication: TYPE 2 DIABETES MELLITUS
     Route: 048

REACTIONS (13)
  - Palpitations [Unknown]
  - Malaise [Unknown]
  - Fatigue [Unknown]
  - Arthralgia [Unknown]
  - Weight increased [Unknown]
  - Peripheral swelling [Not Recovered/Not Resolved]
  - Dizziness [Recovering/Resolving]
  - Headache [Unknown]
  - Weight decreased [Unknown]
  - Nausea [Recovering/Resolving]
  - Vomiting [Recovered/Resolved]
  - Drug ineffective for unapproved indication [Unknown]
  - Product quality issue [Unknown]

NARRATIVE: CASE EVENT DATE: 200604
